FAERS Safety Report 16947319 (Version 1)
Quarter: 2019Q4

REPORT INFORMATION
  Report Type: Spontaneous
  Country: US (occurrence: US)
  Receive Date: 20191022
  Receipt Date: 20191022
  Transmission Date: 20200122
  Serious: Yes (Other)
  Sender: FDA-Public Use
  Company Number: US-SA-2019SA289924

PATIENT
  Age: 62 Year
  Sex: Female

DRUGS (2)
  1. APIDRA [Suspect]
     Active Substance: INSULIN GLULISINE
     Indication: TYPE 1 DIABETES MELLITUS
     Dosage: 84 U, QD
     Route: 065
  2. APIDRA [Suspect]
     Active Substance: INSULIN GLULISINE
     Dosage: 6 U Q 4 TO 6 HOURS FOR A BASAL AMOUNT AND THEN TAKES BOLUS DOSES
     Route: 065

REACTIONS (5)
  - Rubber sensitivity [Unknown]
  - Hypersensitivity [Unknown]
  - Myocardial infarction [Unknown]
  - Upper-airway cough syndrome [Unknown]
  - Choking [Unknown]
